FAERS Safety Report 6253395-0 (Version None)
Quarter: 2009Q2

REPORT INFORMATION
  Report Type: 
  Country: None (occurrence: None)
  Receive Date: 20090626
  Receipt Date: 20080723
  Transmission Date: 20091009
  Serious: Yes (Hospitalization)
  Sender: FDA-Public Use
  Company Number: 567925

PATIENT
  Age: 60 Year
  Sex: Male
  Weight: 112.5 kg

DRUGS (8)
  1. XELODA [Suspect]
     Indication: COLON CANCER METASTATIC
     Dosage: 28 GRAM  1 PER 2 WEEK  ORAL
     Route: 048
     Dates: start: 20080429, end: 20080505
  2. CP-751,871 (CP-751,871) [Suspect]
     Indication: COLON CANCER METASTATIC
     Dosage: 2460 MG  1 PER DAY  INTRAVENOUS
     Route: 042
     Dates: start: 20080306, end: 20080408
  3. IRINOTECAN HCL [Suspect]
     Indication: COLON CANCER METASTATIC
     Dosage: 405 MG  1 PER 2 WEEK  INTRAVENOUS
     Route: 042
     Dates: start: 20080429, end: 20080429
  4. NOVOLIN (INSULIN HUMAN) [Concomitant]
  5. ZOFRAN [Concomitant]
  6. PROMETHEZINE HCL [Concomitant]
  7. ACTOS [Concomitant]
  8. METFORMIN HCL [Concomitant]

REACTIONS (1)
  - NEUTROPENIA [None]
